FAERS Safety Report 14668991 (Version 1)
Quarter: 2018Q1

REPORT INFORMATION
  Report Type: Other
  Country: US (occurrence: US)
  Receive Date: 20180322
  Receipt Date: 20180322
  Transmission Date: 20180509
  Serious: Yes (Hospitalization, Other)
  Sender: FDA-Public Use
  Company Number: US-NAVINTA LLC-000054

PATIENT
  Age: 34 Year
  Sex: Female

DRUGS (2)
  1. INDOMETACIN [Suspect]
     Active Substance: INDOMETHACIN
     Indication: PROPHYLAXIS
     Route: 065
  2. INDOMETACIN [Suspect]
     Active Substance: INDOMETHACIN
     Indication: PREMATURE DELIVERY
     Route: 065

REACTIONS (3)
  - Caesarean section [Recovered/Resolved]
  - Premature delivery [Recovered/Resolved]
  - Maternal exposure during pregnancy [Recovered/Resolved]
